FAERS Safety Report 5076890-9 (Version None)
Quarter: 2006Q3

REPORT INFORMATION
  Report Type: 
  Country: None (occurrence: None)
  Receive Date: 20060810
  Receipt Date: 20060801
  Transmission Date: 20061208
  Serious: Yes (Hospitalization)
  Sender: FDA-Public Use
  Company Number: JP-JNJFOC-20060801380

PATIENT

DRUGS (2)
  1. RISPERDAL [Suspect]
     Indication: DRUG EXPOSURE DURING PREGNANCY
  2. CLONAZEPAM [Concomitant]
     Indication: DRUG EXPOSURE DURING PREGNANCY

REACTIONS (4)
  - CONVULSION NEONATAL [None]
  - DRUG EXPOSURE DURING PREGNANCY [None]
  - HYPOGLYCAEMIA NEONATAL [None]
  - HYPOXIA [None]
